FAERS Safety Report 22320066 (Version 5)
Quarter: 2023Q2

REPORT INFORMATION
  Report Type: Spontaneous
  Country: US (occurrence: US)
  Receive Date: 20230515
  Receipt Date: 20230615
  Transmission Date: 20230722
  Serious: No
  Sender: FDA-Public Use
  Company Number: US-PFIZER INC-PV202300083820

PATIENT
  Age: 80 Year
  Sex: Female

DRUGS (1)
  1. IBRANCE [Suspect]
     Active Substance: PALBOCICLIB
     Indication: Breast cancer metastatic
     Dosage: 125 MG
     Dates: start: 20230430

REACTIONS (8)
  - Nausea [Recovered/Resolved]
  - Decreased appetite [Unknown]
  - Feeling jittery [Unknown]
  - Nervousness [Unknown]
  - Taste disorder [Unknown]
  - White blood cell count decreased [Unknown]
  - Dysgeusia [Unknown]
  - Epistaxis [Unknown]

NARRATIVE: CASE EVENT DATE: 20230101
